FAERS Safety Report 23812186 (Version 1)
Quarter: 2024Q2

REPORT INFORMATION
  Report Type: Spontaneous
  Country: US (occurrence: US)
  Receive Date: 20240503
  Receipt Date: 20240503
  Transmission Date: 20240716
  Serious: No
  Sender: FDA-Public Use
  Company Number: US-UCBSA-2023035319

PATIENT
  Age: 32 Year
  Sex: Male
  Weight: 94.331 kg

DRUGS (1)
  1. CIMZIA [Suspect]
     Active Substance: CERTOLIZUMAB PEGOL
     Indication: Crohn^s disease
     Dosage: 400 MILLIGRAM PER MILLILITRE, EV 4 WEEKS
     Route: 058

REACTIONS (1)
  - Pharyngitis streptococcal [Unknown]

NARRATIVE: CASE EVENT DATE: 20230601
